FAERS Safety Report 7522599-9 (Version None)
Quarter: 2011Q2

REPORT INFORMATION
  Report Type: 
  Country: None (occurrence: None)
  Receive Date: 20110603
  Receipt Date: 20110601
  Transmission Date: 20111010
  Serious: Yes (Hospitalization)
  Sender: FDA-Public Use
  Company Number: AU-ROCHE-780339

PATIENT
  Age: 65 Year
  Sex: Female

DRUGS (1)
  1. XELODA [Suspect]
     Dosage: DOSE:  0.5 X 500 MG, 10 TABLETS A DAY.
     Route: 065

REACTIONS (2)
  - MUCOSAL INFLAMMATION [None]
  - DIARRHOEA [None]
